FAERS Safety Report 6211810-2 (Version None)
Quarter: 2009Q2

REPORT INFORMATION
  Report Type: 
  Country: None (occurrence: None)
  Receive Date: 20090602
  Receipt Date: 20090528
  Transmission Date: 20091009
  Serious: Yes (Hospitalization)
  Sender: FDA-Public Use
  Company Number: US-MERCK-0905USA04070

PATIENT
  Sex: Male

DRUGS (2)
  1. JANUVIA [Suspect]
     Indication: TYPE 2 DIABETES MELLITUS
     Route: 048
     Dates: start: 20090401, end: 20090501
  2. AVANDAMET [Concomitant]
     Route: 065

REACTIONS (3)
  - CARDIAC FAILURE [None]
  - MALAISE [None]
  - RENAL FAILURE [None]
